FAERS Safety Report 12191573 (Version 1)
Quarter: 2016Q1

REPORT INFORMATION
  Report Type: Spontaneous
  Country: US (occurrence: US)
  Receive Date: 20160318
  Receipt Date: 20160318
  Transmission Date: 20160526
  Serious: Yes (Hospitalization, Other)
  Sender: FDA-Public Use
  Company Number: US-INDIVIOR LIMITED-INDV-088908-2016

PATIENT
  Age: 64 Year
  Sex: Male

DRUGS (2)
  1. BUPRENORPHINE/NALOXONE [Suspect]
     Active Substance: BUPRENORPHINE\NALOXONE
     Dosage: 2 MG, QD
     Route: 065
  2. BUPRENORPHINE/NALOXONE [Suspect]
     Active Substance: BUPRENORPHINE\NALOXONE
     Indication: PAIN
     Dosage: 4MG, TID
     Route: 065

REACTIONS (7)
  - Off label use [Recovered/Resolved]
  - Chronic obstructive pulmonary disease [Unknown]
  - Depressed level of consciousness [Unknown]
  - Product use issue [Recovered/Resolved]
  - Hypercapnia [Unknown]
  - Drug ineffective for unapproved indication [Recovered/Resolved]
  - Somnolence [Unknown]
